FAERS Safety Report 7741145-8 (Version None)
Quarter: 2011Q3

REPORT INFORMATION
  Report Type: 
  Country: None (occurrence: None)
  Receive Date: 20110909
  Receipt Date: 20110907
  Transmission Date: 20111222
  Serious: Yes (Hospitalization, Other)
  Sender: FDA-Public Use
  Company Number: US-ROXANE LABORATORIES, INC.-2011-RO-01222RO

PATIENT
  Age: 85 Year
  Sex: Male

DRUGS (2)
  1. ROPINIROLE [Suspect]
     Indication: RESTLESS LEGS SYNDROME
     Dosage: 4 MG
  2. MIRTAZAPINE [Suspect]
     Indication: DEPRESSIVE SYMPTOM
     Dosage: 15 MG

REACTIONS (9)
  - HALLUCINATIONS, MIXED [None]
  - CONDITION AGGRAVATED [None]
  - PNEUMONIA [None]
  - SLEEP DISORDER [None]
  - AGGRESSION [None]
  - PSYCHOTIC DISORDER [None]
  - DEPRESSIVE SYMPTOM [None]
  - RESTLESS LEGS SYNDROME [None]
  - CONFUSIONAL STATE [None]
